FAERS Safety Report 10582390 (Version 4)
Quarter: 2016Q3

REPORT INFORMATION
  Report Type: Report from Study
  Country: US (occurrence: US)
  Receive Date: 20141113
  Receipt Date: 20160923
  Transmission Date: 20161109
  Serious: Yes (Other)
  Sender: FDA-Public Use
  Company Number: US-SA-2014SA021412

PATIENT
  Age: 51 Year
  Sex: Female

DRUGS (2)
  1. AUBAGIO [Suspect]
     Active Substance: TERIFLUNOMIDE
     Indication: MULTIPLE SCLEROSIS
     Route: 048
     Dates: start: 20130815, end: 20140813
  2. ALEVE [Concomitant]
     Active Substance: NAPROXEN SODIUM

REACTIONS (11)
  - Paranoia [Unknown]
  - Swelling [Not Recovered/Not Resolved]
  - Cognitive disorder [Not Recovered/Not Resolved]
  - Depression [Unknown]
  - Feeling abnormal [Unknown]
  - Multiple sclerosis relapse [Unknown]
  - Alopecia [Unknown]
  - Influenza like illness [Not Recovered/Not Resolved]
  - Crying [Unknown]
  - Mental disorder [Not Recovered/Not Resolved]
  - Tremor [Not Recovered/Not Resolved]

NARRATIVE: CASE EVENT DATE: 201408
